FAERS Safety Report 7263062-2 (Version None)
Quarter: 2011Q1

REPORT INFORMATION
  Report Type: 
  Country: None (occurrence: None)
  Receive Date: 20110130
  Receipt Date: 20101004
  Transmission Date: 20110831
  Serious: No
  Sender: FDA-Public Use
  Company Number: US-ABBOTT-10P-163-0675432-00

PATIENT
  Age: 66 Year
  Sex: Female

DRUGS (6)
  1. OXYBUTYNIN [Concomitant]
     Indication: URINARY INCONTINENCE
     Dosage: 10MG DAILY
  2. TRAMADOL HCL [Concomitant]
     Indication: NECK PAIN
  3. FLONASE [Concomitant]
     Indication: SINUSITIS
     Dosage: 1 SPRAY EACH NOSTRIL BID
     Route: 045
  4. TRAMADOL HCL [Concomitant]
     Indication: BACK PAIN
  5. TIZANIDINE [Concomitant]
     Indication: MUSCLE RELAXANT THERAPY
  6. HUMIRA [Suspect]
     Indication: PSORIASIS
     Dates: start: 20100726

REACTIONS (3)
  - SKIN HAEMORRHAGE [None]
  - PRURITUS [None]
  - SKIN ATROPHY [None]
